FAERS Safety Report 9586892 (Version 4)
Quarter: 2014Q3

REPORT INFORMATION
  Report Type: Spontaneous
  Country: IE (occurrence: IE)
  Receive Date: 20131003
  Receipt Date: 20140905
  Transmission Date: 20150326
  Serious: Yes (Disabling, Other)
  Sender: FDA-Public Use
  Company Number: PHHY2013IE081274

PATIENT
  Age: 41 Year
  Sex: Male

DRUGS (1)
  1. LAMISIL [Suspect]
     Active Substance: TERBINAFINE HYDROCHLORIDE
     Indication: TINEA INFECTION
     Dosage: 250 MG, DAILY
     Route: 048
     Dates: start: 20130622, end: 20130723

REACTIONS (14)
  - Blood bilirubin abnormal [Unknown]
  - Gamma-glutamyltransferase decreased [Unknown]
  - Alanine aminotransferase abnormal [Unknown]
  - Chromaturia [Unknown]
  - Fatigue [Not Recovered/Not Resolved]
  - Cholestasis [Not Recovered/Not Resolved]
  - Decreased appetite [Unknown]
  - Drug-induced liver injury [Not Recovered/Not Resolved]
  - Hepatic necrosis [Not Recovered/Not Resolved]
  - Jaundice [Not Recovered/Not Resolved]
  - Faeces discoloured [Unknown]
  - Pruritus [Not Recovered/Not Resolved]
  - Hepatic function abnormal [Recovering/Resolving]
  - Nausea [Not Recovered/Not Resolved]

NARRATIVE: CASE EVENT DATE: 201307
